FAERS Safety Report 23218917 (Version 1)
Quarter: 2023Q4

REPORT INFORMATION
  Report Type: Spontaneous
  Country: PT (occurrence: PT)
  Receive Date: 20231122
  Receipt Date: 20231122
  Transmission Date: 20240110
  Serious: Yes (Other)
  Sender: FDA-Public Use
  Company Number: PT-SUN PHARMACEUTICAL INDUSTRIES LTD-2023R1-418853

PATIENT
  Age: 4 Year
  Sex: Male

DRUGS (2)
  1. CARBIDOPA\LEVODOPA [Suspect]
     Active Substance: CARBIDOPA\LEVODOPA
     Indication: Cerebral palsy
     Route: 065
  2. OXITRIPTAN [Suspect]
     Active Substance: OXITRIPTAN
     Indication: Cerebral palsy
     Route: 065

REACTIONS (1)
  - Therapy partial responder [Unknown]
